FAERS Safety Report 5147660-8 (Version None)
Quarter: 2006Q4

REPORT INFORMATION
  Report Type: 
  Country: None (occurrence: None)
  Receive Date: 20061110
  Receipt Date: 20061030
  Transmission Date: 20070319
  Serious: Yes (Hospitalization)
  Sender: FDA-Public Use
  Company Number: 2006AP05227

PATIENT
  Age: 23034 Day
  Sex: Male

DRUGS (6)
  1. CRESTOR [Suspect]
     Indication: TYPE IIA HYPERLIPIDAEMIA
     Route: 048
     Dates: start: 20061016
  2. LIPITOR [Concomitant]
     Indication: TYPE IIA HYPERLIPIDAEMIA
  3. LIPITOR [Concomitant]
     Indication: MALAISE
  4. MEVALOTIN [Concomitant]
     Indication: MALAISE
  5. MEVALOTIN [Concomitant]
     Indication: TYPE IIA HYPERLIPIDAEMIA
  6. LIVALO [Concomitant]
     Indication: TYPE IIA HYPERLIPIDAEMIA

REACTIONS (5)
  - CHEST DISCOMFORT [None]
  - CORONARY ANGIOPLASTY [None]
  - ELECTROCARDIOGRAM ST SEGMENT ELEVATION [None]
  - MALAISE [None]
  - VENTRICULAR EXTRASYSTOLES [None]
